FAERS Safety Report 4475325-4 (Version None)
Quarter: 2004Q4

REPORT INFORMATION
  Report Type: 
  Country: None (occurrence: None)
  Receive Date: 20041015
  Receipt Date: 20040820
  Transmission Date: 20050328
  Serious: Yes (Other)
  Sender: FDA-Public Use
  Company Number: 200418342GDDC

PATIENT
  Age: 17 Year
  Sex: Female

DRUGS (5)
  1. LANTUS [Suspect]
     Indication: DIABETES MELLITUS INSULIN-DEPENDENT
     Dosage: DOSE UNIT: UNITS
     Route: 058
     Dates: start: 20040330
  2. HUMALOG [Concomitant]
     Indication: DIABETES MELLITUS INSULIN-DEPENDENT
     Dosage: DOSE UNIT: UNITS
     Route: 058
  3. ZOLOFT [Concomitant]
     Indication: DEPRESSION
     Route: 048
  4. JULIET-35 [Concomitant]
     Route: 048
     Dates: start: 20030301
  5. FERRO-GRADUMET [Concomitant]
     Indication: ANAEMIA
     Route: 048
     Dates: start: 20030801

REACTIONS (1)
  - ARTHRALGIA [None]
